FAERS Safety Report 17343348 (Version 1)
Quarter: 2020Q1

REPORT INFORMATION
  Report Type: Other
  Country: AU (occurrence: AU)
  Receive Date: 20200129
  Receipt Date: 20200129
  Transmission Date: 20200409
  Serious: Yes (Hospitalization)
  Sender: FDA-Public Use
  Company Number: AU-ALSI-202000031

PATIENT
  Age: 24 Year
  Sex: Female

DRUGS (1)
  1. NITROUS OXIDE. [Suspect]
     Active Substance: NITROUS OXIDE
     Indication: DRUG ABUSE
     Route: 055

REACTIONS (2)
  - Drug abuse [Unknown]
  - Subacute combined cord degeneration [Unknown]
